FAERS Safety Report 10377285 (Version 3)
Quarter: 2014Q4

REPORT INFORMATION
  Report Type: Spontaneous
  Country: JP (occurrence: JP)
  Receive Date: 20140812
  Receipt Date: 20141113
  Transmission Date: 20150528
  Serious: Yes (Other)
  Sender: FDA-Public Use
  Company Number: PHHY2002JP002996

PATIENT
  Age: 77 Year
  Sex: Female

DRUGS (2)
  1. GLIVEC [Suspect]
     Active Substance: IMATINIB MESYLATE
     Dosage: 200 MG, UNK
     Route: 065
  2. GLIVEC [Suspect]
     Active Substance: IMATINIB MESYLATE
     Indication: CHRONIC MYELOID LEUKAEMIA
     Dosage: 400 MG, QD
     Route: 065
     Dates: start: 2002

REACTIONS (8)
  - Haematotoxicity [Unknown]
  - Neutropenia [Unknown]
  - Neutrophil count decreased [Unknown]
  - Anaemia [Unknown]
  - Thrombocytopenia [Unknown]
  - Paralysis [Unknown]
  - Platelet count decreased [Unknown]
  - Hypoaesthesia [Unknown]
